FAERS Safety Report 19765437 (Version 1)
Quarter: 2021Q3

REPORT INFORMATION
  Report Type: Spontaneous
  Country: DE (occurrence: DE)
  Receive Date: 20210830
  Receipt Date: 20210830
  Transmission Date: 20211014
  Serious: Yes (Other)
  Sender: FDA-Public Use
  Company Number: DE-PFIZER INC-202101053240

PATIENT
  Sex: Female
  Weight: 59 kg

DRUGS (4)
  1. TRAZIMERA [Suspect]
     Active Substance: TRASTUZUMAB-QYYP
     Indication: BREAST CANCER
     Dosage: LOADING DOSE
     Route: 042
     Dates: start: 20201229
  2. TRAZIMERA [Suspect]
     Active Substance: TRASTUZUMAB-QYYP
     Dosage: FREQ:21 D;LOADING DOSE
     Route: 042
     Dates: start: 20201229
  3. PERJETA [Suspect]
     Active Substance: PERTUZUMAB
     Indication: BREAST CANCER
     Dosage: LOADING DOSE
     Route: 042
     Dates: start: 20201229
  4. PERJETA [Suspect]
     Active Substance: PERTUZUMAB
     Dosage: FREQ:21 D;LOADING DOSE
     Route: 042

REACTIONS (1)
  - Polyneuropathy [Unknown]
